FAERS Safety Report 7658222-2 (Version None)
Quarter: 2011Q3

REPORT INFORMATION
  Report Type: 
  Country: None (occurrence: None)
  Receive Date: 20110805
  Receipt Date: 20110727
  Transmission Date: 20111222
  Serious: Yes (Other)
  Sender: FDA-Public Use
  Company Number: US-JNJFOC-20110712162

PATIENT
  Sex: Female
  Weight: 53.52 kg

DRUGS (3)
  1. CLARITIN [Concomitant]
     Indication: HYPERSENSITIVITY
     Route: 048
  2. PREDNISONE [Concomitant]
     Indication: RHEUMATOID ARTHRITIS
     Route: 048
  3. STELARA [Suspect]
     Indication: PSORIASIS
     Route: 058
     Dates: start: 20110327

REACTIONS (2)
  - BLOOD SODIUM DECREASED [None]
  - PAIN IN EXTREMITY [None]
